FAERS Safety Report 7867233-3 (Version None)
Quarter: 2011Q4

REPORT INFORMATION
  Report Type: 
  Country: None (occurrence: None)
  Receive Date: 20111028
  Receipt Date: 20111020
  Transmission Date: 20120403
  Serious: Yes (Other)
  Sender: FDA-Public Use
  Company Number: IT-GLAXOSMITHKLINE-B0758649A

PATIENT
  Sex: Female

DRUGS (2)
  1. ZOFRAN [Suspect]
     Indication: SEDATION
     Dosage: 4ML SINGLE DOSE
     Route: 042
     Dates: start: 20111012, end: 20111012
  2. MORPHINE [Suspect]
     Indication: SEDATION
     Dosage: 10MGML SINGLE DOSE
     Route: 042
     Dates: start: 20111012, end: 20111012

REACTIONS (4)
  - SOMNOLENCE [None]
  - HYPERHIDROSIS [None]
  - DYSPNOEA [None]
  - OXYGEN SATURATION DECREASED [None]
